FAERS Safety Report 16128065 (Version 1)
Quarter: 2019Q1

REPORT INFORMATION
  Report Type: Spontaneous
  Country: US (occurrence: US)
  Receive Date: 20190328
  Receipt Date: 20190328
  Transmission Date: 20190418
  Serious: No
  Sender: FDA-Public Use
  Company Number: US-SA-2019SA080736

PATIENT
  Sex: Female
  Weight: 58 kg

DRUGS (5)
  1. RISPERIDONE. [Suspect]
     Active Substance: RISPERIDONE
  2. QUETIAPINE FUMARATE. [Suspect]
     Active Substance: QUETIAPINE FUMARATE
  3. AMBIEN [Suspect]
     Active Substance: ZOLPIDEM TARTRATE
     Dosage: UNK UNK, UNK
     Route: 065
  4. MORPHINE SALT NOT SPECIFIED [Suspect]
     Active Substance: MORPHINE
  5. GABAPENTIN. [Suspect]
     Active Substance: GABAPENTIN

REACTIONS (5)
  - Hallucination [Unknown]
  - Memory impairment [Unknown]
  - Adverse drug reaction [Unknown]
  - Unevaluable event [Unknown]
  - Nausea [Unknown]
